FAERS Safety Report 8423103-3 (Version None)
Quarter: 2012Q2

REPORT INFORMATION
  Report Type: 
  Country: None (occurrence: None)
  Receive Date: 20120608
  Receipt Date: 20120605
  Transmission Date: 20120825
  Serious: Yes (Death, Other)
  Sender: FDA-Public Use
  Company Number: US-AMGEN-USASP2011066021

PATIENT
  Age: 75 Year
  Sex: Male
  Weight: 79.8 kg

DRUGS (20)
  1. ENBREL [Suspect]
     Indication: RHEUMATOID ARTHRITIS
     Dosage: 50 MG, QWK
     Route: 058
     Dates: start: 20060112, end: 20111224
  2. FERROUS SULFATE TAB [Concomitant]
     Dosage: UNK
  3. FOLIC ACID [Concomitant]
     Dosage: UNK
  4. LANTUS [Concomitant]
     Dosage: UNK
  5. METHOTREXATE [Concomitant]
     Indication: RHEUMATOID ARTHRITIS
     Dosage: 10 MG, QWK
     Route: 048
     Dates: start: 20051109, end: 20111024
  6. ALLEGRA [Concomitant]
     Dosage: UNK
  7. COUMADIN [Concomitant]
     Dosage: UNK
  8. METOPROLOL SUCCINATE [Concomitant]
     Dosage: UNK
  9. VICODIN [Concomitant]
     Dosage: UNK
  10. CALTRATE                           /00751519/ [Concomitant]
     Dosage: UNK
  11. ENTOCORT EC [Concomitant]
     Dosage: UNK
  12. FISH OIL [Concomitant]
     Dosage: UNK
  13. FLONASE [Concomitant]
     Dosage: UNK
  14. HYDROCHLOROTHIAZDE TAB [Concomitant]
     Dosage: UNK
  15. ASPIRIN [Concomitant]
     Dosage: UNK
  16. LISINOPRIL [Concomitant]
     Dosage: UNK
  17. PRILOSEC [Concomitant]
     Dosage: UNK
  18. GLYBURIDE [Concomitant]
     Dosage: UNK
  19. METFORMIN HYDROCHLORIDE [Concomitant]
     Dosage: UNK
  20. PREVALITE [Concomitant]
     Dosage: UNK

REACTIONS (7)
  - HEPATIC MASS [None]
  - METASTATIC MALIGNANT MELANOMA [None]
  - GAIT DISTURBANCE [None]
  - BONE LESION [None]
  - PULMONARY MASS [None]
  - WEIGHT DECREASED [None]
  - BACK PAIN [None]
